FAERS Safety Report 25182410 (Version 1)
Quarter: 2025Q2

REPORT INFORMATION
  Report Type: Spontaneous
  Country: US (occurrence: US)
  Receive Date: 20250410
  Receipt Date: 20250410
  Transmission Date: 20250717
  Serious: No
  Sender: KINIKSA PHARMACEUTICALS
  Company Number: US-Kiniksa Pharmaceuticals Ltd.-2024KPU001812

PATIENT
  Age: 65 Year
  Sex: Female

DRUGS (3)
  1. ARCALYST [Suspect]
     Active Substance: RILONACEPT
     Indication: Pericarditis
     Route: 058
     Dates: start: 202402
  2. ARCALYST [Suspect]
     Active Substance: RILONACEPT
     Dosage: 160 MG (2 ML)
     Route: 058
  3. PREDNISONE [Suspect]
     Active Substance: PREDNISONE
     Indication: Product used for unknown indication

REACTIONS (7)
  - Liver function test increased [Recovering/Resolving]
  - Hepatic steatosis [Unknown]
  - Abdominal pain [Not Recovered/Not Resolved]
  - Weight increased [Unknown]
  - Blood alkaline phosphatase increased [Not Recovered/Not Resolved]
  - Bronchitis [Recovered/Resolved]
  - Nasopharyngitis [Unknown]

NARRATIVE: CASE EVENT DATE: 20240101
